FAERS Safety Report 5751706-3 (Version None)
Quarter: 2008Q2

REPORT INFORMATION
  Report Type: 
  Country: None (occurrence: None)
  Receive Date: 20080527
  Receipt Date: 20080508
  Transmission Date: 20081010
  Serious: Yes (Other)
  Sender: FDA-Public Use
  Company Number: MC200800139

PATIENT
  Age: 50 Year
  Sex: Male
  Weight: 109 kg

DRUGS (11)
  1. ANGIOMAX [Suspect]
     Indication: PERCUTANEOUS CORONARY INTERVENTION
     Dosage: 0.75 MG/KG, BOLUS, INTRAVENOUS, 1.75 MG/KG, HR, INTRAVENOUS
     Route: 042
     Dates: start: 20080314, end: 20080314
  2. ANGIOMAX [Suspect]
     Indication: PERCUTANEOUS CORONARY INTERVENTION
     Dosage: 0.75 MG/KG, BOLUS, INTRAVENOUS, 1.75 MG/KG, HR, INTRAVENOUS
     Route: 042
     Dates: start: 20080314, end: 20080314
  3. CONTRAST MEDIA() [Suspect]
     Indication: PERCUTANEOUS CORONARY INTERVENTION
     Dosage: UNK, UNK, INTRAVENOUS
     Route: 042
     Dates: start: 20080314, end: 20080314
  4. LOPRESSOR [Concomitant]
  5. TRAZODONE HCL [Concomitant]
  6. LOVASTATIN [Concomitant]
  7. ZOLPIDEM [Concomitant]
  8. ASPIRIN [Concomitant]
  9. CYMBALTA [Concomitant]
  10. PRILOSEC [Concomitant]
  11. LOVENOX [Concomitant]

REACTIONS (2)
  - HYPERSENSITIVITY [None]
  - TREMOR [None]
